FAERS Safety Report 18910952 (Version 1)
Quarter: 2021Q1

REPORT INFORMATION
  Report Type: Spontaneous
  Country: CN (occurrence: CN)
  Receive Date: 20210218
  Receipt Date: 20210218
  Transmission Date: 20210420
  Serious: Yes (Hospitalization)
  Sender: FDA-Public Use
  Company Number: CN-PFIZER INC-2021132082

PATIENT
  Age: 33 Year
  Sex: Female
  Weight: 51.5 kg

DRUGS (1)
  1. LYRICA [Suspect]
     Active Substance: PREGABALIN
     Indication: SPONDYLITIS
     Dosage: 75 MG, 1X/DAY
     Route: 048
     Dates: start: 20210126, end: 20210201

REACTIONS (11)
  - Pruritus [Unknown]
  - Face oedema [Unknown]
  - Eye discharge [Unknown]
  - Lip swelling [Unknown]
  - Lip blister [Unknown]
  - Eye pruritus [Unknown]
  - Erythema [Unknown]
  - Ocular hyperaemia [Unknown]
  - Erythema multiforme [Unknown]
  - Lip erythema [Unknown]
  - Off label use [Unknown]

NARRATIVE: CASE EVENT DATE: 20210126
